FAERS Safety Report 4507308-X (Version None)
Quarter: 2004Q4

REPORT INFORMATION
  Report Type: 
  Country: None (occurrence: None)
  Receive Date: 20041025
  Receipt Date: 20040726
  Transmission Date: 20050328
  Serious: Yes (Hospitalization)
  Sender: FDA-Public Use
  Company Number: US-JNJFOC-20040706875

PATIENT
  Age: 77 Year
  Sex: Female
  Weight: 81.1939 kg

DRUGS (12)
  1. INFLIXIMAB (INFLIXIMAB, RECOMBINANT) LYOPHILIZED POWDER [Suspect]
     Indication: RHEUMATOID ARTHRITIS
     Dosage: INTRAVENOUS
     Route: 042
     Dates: start: 20030310, end: 20030324
  2. METHOTREXATE [Concomitant]
  3. PREDNISONE [Concomitant]
  4. CELEXA [Concomitant]
  5. TYLENOL W/ CODEINE NO. 3 [Concomitant]
  6. PROTONIX [Concomitant]
  7. FOLIC ACID [Concomitant]
  8. DITROPAN XL [Concomitant]
  9. DYAZIDE [Concomitant]
  10. COUMADIN [Concomitant]
  11. PREMARIN [Concomitant]
  12. ENBREL [Concomitant]

REACTIONS (1)
  - PNEUMONIA [None]
